FAERS Safety Report 9537168 (Version 2)
Quarter: 2013Q3

REPORT INFORMATION
  Report Type: Spontaneous
  Country: TH (occurrence: TH)
  Receive Date: 20130919
  Receipt Date: 20130919
  Transmission Date: 20140515
  Serious: Yes (Other)
  Sender: FDA-Public Use
  Company Number: TH-BAXTER-2013BAX030391

PATIENT
  Age: 80 Year
  Sex: Female

DRUGS (2)
  1. DIANEAL LOW CALCIUM (2.5 PERCENT MEQ/L) PERITONEAL DIALYSIS SOL WITH 1 [Suspect]
     Indication: PERITONEAL DIALYSIS
     Route: 033
     Dates: start: 20120910
  2. EXTRANEAL PERITONEAL DIALYSIS SOLUTION WITH 7.5 PERCENT ICODEXTRIN [Suspect]
     Indication: PERITONEAL DIALYSIS
     Route: 033
     Dates: start: 20121025

REACTIONS (3)
  - Fungal test positive [Unknown]
  - Fungal peritonitis [Unknown]
  - Device related infection [Unknown]
